FAERS Safety Report 25487556 (Version 2)
Quarter: 2025Q3

REPORT INFORMATION
  Report Type: Spontaneous
  Country: EU (occurrence: EU)
  Receive Date: 20250627
  Receipt Date: 20250704
  Transmission Date: 20251020
  Serious: Yes (Life-Threatening, Hospitalization, Other)
  Sender: ALKEM
  Company Number: None

PATIENT
  Sex: Female
  Weight: 4.9 kg

DRUGS (5)
  1. SILDENAFIL [Suspect]
     Active Substance: SILDENAFIL
     Indication: Pulmonary hypertension
     Dosage: 2 MILLIGRAM/KILOGRAM, QD (EVERY 1 DAY)
     Route: 065
  2. SILDENAFIL [Suspect]
     Active Substance: SILDENAFIL
     Dosage: 1.9 MILLIGRAM/KILOGRAM, QD
     Route: 065
  3. IBUPROFEN [Suspect]
     Active Substance: IBUPROFEN
     Indication: Patent ductus arteriosus
     Route: 042
  4. ILOPROST [Suspect]
     Active Substance: ILOPROST
     Indication: Pulmonary hypertension
  5. NITRIC OXIDE [Suspect]
     Active Substance: NITRIC OXIDE
     Indication: Pulmonary hypertension

REACTIONS (3)
  - Pulmonary oedema [Recovered/Resolved]
  - Cyanosis neonatal [Recovered/Resolved]
  - Drug ineffective [Unknown]
